FAERS Safety Report 22351538 (Version 1)
Quarter: 2023Q2

REPORT INFORMATION
  Report Type: Spontaneous
  Country: US (occurrence: US)
  Receive Date: 20230522
  Receipt Date: 20230522
  Transmission Date: 20230722
  Serious: Yes (Other)
  Sender: FDA-Public Use
  Company Number: US-PFIZER INC-202300195084

PATIENT
  Age: 59 Year
  Sex: Male
  Weight: 79.38 kg

DRUGS (3)
  1. INLYTA [Suspect]
     Active Substance: AXITINIB
     Indication: Metastatic renal cell carcinoma
     Dosage: 5 MG, 2X/DAY (5MG TAKEN EVERY 12 HOURS)
     Dates: start: 20230515
  2. KEYTRUDA [Concomitant]
     Active Substance: PEMBROLIZUMAB
     Dosage: UNK
     Dates: start: 20230513
  3. LOSARTAN [Concomitant]
     Active Substance: LOSARTAN
     Indication: Essential hypertension
     Dosage: 50 MG, DAILY (50MG DAILY, SINGLE PILL)

REACTIONS (1)
  - Hypertension [Unknown]
